FAERS Safety Report 8485056-1 (Version None)
Quarter: 2012Q2

REPORT INFORMATION
  Report Type: 
  Country: None (occurrence: None)
  Receive Date: 20120625
  Receipt Date: 20120611
  Transmission Date: 20120825
  Serious: Yes (Hospitalization)
  Sender: FDA-Public Use
  Company Number: UTC-019587

PATIENT
  Age: 55 Year
  Sex: Female
  Weight: 94.54 kg

DRUGS (3)
  1. DIURETICS (DIURETICS) [Concomitant]
  2. COUMADIN [Concomitant]
  3. REMODULIN [Suspect]
     Indication: PULMONARY ARTERIAL HYPERTENSION
     Dosage: 89.28 UG/KG (0.062 UG/KG, 1 IN 1 MIN), SUBCUTANEOUS
     Route: 058
     Dates: start: 20100928

REACTIONS (3)
  - HAEMATOMA [None]
  - BURNING SENSATION [None]
  - MASS [None]
